FAERS Safety Report 5602222-0 (Version None)
Quarter: 2008Q1

REPORT INFORMATION
  Report Type: 
  Country: None (occurrence: None)
  Receive Date: 20080125
  Receipt Date: 20080115
  Transmission Date: 20080703
  Serious: Yes (Other)
  Sender: FDA-Public Use
  Company Number: US-ASTRAZENECA-2006UW27767

PATIENT
  Age: 595 Month
  Sex: Female
  Weight: 84.1 kg

DRUGS (10)
  1. SEROQUEL [Suspect]
     Indication: BIPOLAR DISORDER
     Dosage: 100 MG, 200 MG, 300 MG
     Route: 048
     Dates: start: 20000101
  2. SEROQUEL [Suspect]
     Indication: DEPRESSION
     Dosage: 100 MG, 200 MG, 300 MG
     Route: 048
     Dates: start: 20000101
  3. SEROQUEL [Suspect]
     Indication: INSOMNIA
     Dosage: 100 MG, 200 MG, 300 MG
     Route: 048
     Dates: start: 20000101
  4. ABILIFY [Concomitant]
     Dates: start: 20020101
  5. HALDOL [Concomitant]
     Dosage: 10 TO 20 MG
     Dates: start: 19840101, end: 20020101
  6. RISPERDAL [Concomitant]
     Dates: start: 19990101, end: 20010101
  7. ZYPREXA [Concomitant]
     Dates: start: 19990101, end: 20010101
  8. LAMICTAL [Concomitant]
  9. GABITRIL [Concomitant]
  10. XANAX [Concomitant]

REACTIONS (3)
  - DIABETES MELLITUS [None]
  - EXTRAPYRAMIDAL DISORDER [None]
  - NEUROPATHY PERIPHERAL [None]
